FAERS Safety Report 12208841 (Version 1)
Quarter: 2016Q1

REPORT INFORMATION
  Report Type: Spontaneous
  Country: US (occurrence: US)
  Receive Date: 20160324
  Receipt Date: 20160324
  Transmission Date: 20160526
  Serious: No
  Sender: FDA-Public Use
  Company Number: US-SHIONOGI, INC-2016000005

PATIENT
  Sex: Female
  Weight: 67.12 kg

DRUGS (2)
  1. OSPHENA [Suspect]
     Active Substance: OSPEMIFENE
     Indication: OFF LABEL USE
  2. OSPHENA [Suspect]
     Active Substance: OSPEMIFENE
     Indication: ATROPHY
     Dosage: 60 MG, QD
     Route: 048
     Dates: start: 20141209, end: 20160104

REACTIONS (2)
  - Off label use [Unknown]
  - Genital discharge [Unknown]
